FAERS Safety Report 13954329 (Version 1)
Quarter: 2017Q3

REPORT INFORMATION
  Report Type: Spontaneous
  Country: US (occurrence: US)
  Receive Date: 20170911
  Receipt Date: 20170911
  Transmission Date: 20171128
  Serious: Yes (Hospitalization, Other)
  Sender: FDA-Public Use
  Company Number: US-TEVA-805022USA

PATIENT
  Age: 42 Year
  Sex: Male

DRUGS (8)
  1. ALBUTEROL [Concomitant]
     Indication: ASTHMA
  2. PREDNISONE. [Suspect]
     Active Substance: PREDNISONE
     Dosage: 20 MILLIGRAM DAILY;
     Route: 048
  3. PREDNISONE. [Suspect]
     Active Substance: PREDNISONE
     Dosage: 10 MILLIGRAM DAILY;
     Route: 048
  4. PREDNISONE. [Suspect]
     Active Substance: PREDNISONE
     Dosage: 10 MILLIGRAM DAILY;
     Route: 048
  5. PREDNISONE. [Suspect]
     Active Substance: PREDNISONE
     Dosage: 40 MILLIGRAM DAILY;
     Route: 048
  6. PREDNISONE. [Suspect]
     Active Substance: PREDNISONE
     Dosage: 20 MILLIGRAM DAILY;
     Route: 048
  7. PREDNISONE. [Suspect]
     Active Substance: PREDNISONE
     Dosage: 60 MILLIGRAM DAILY;
     Route: 048
  8. PREDNISONE. [Suspect]
     Active Substance: PREDNISONE
     Indication: BRONCHITIS CHRONIC
     Dosage: 40 MILLIGRAM DAILY;
     Route: 048

REACTIONS (1)
  - Osteonecrosis [Unknown]
